FAERS Safety Report 22322658 (Version 1)
Quarter: 2023Q2

REPORT INFORMATION
  Report Type: Spontaneous
  Country: US (occurrence: US)
  Receive Date: 20230516
  Receipt Date: 20230516
  Transmission Date: 20230722
  Serious: No
  Sender: FDA-Public Use
  Company Number: US-JAZZ-2022-US-024796

PATIENT
  Age: 48 Year
  Sex: Female

DRUGS (2)
  1. SUNOSI [Suspect]
     Active Substance: SOLRIAMFETOL
     Indication: Narcolepsy
     Dosage: APPROXIMATELY 1/4 OF 150 MG TABLET IS APPROXIMATELY 37.5 MILLIGRAMS
     Route: 048
  2. SUNOSI [Suspect]
     Active Substance: SOLRIAMFETOL
     Dosage: 150 GRAM
     Route: 048

REACTIONS (2)
  - Therapeutic response decreased [Unknown]
  - Wrong technique in product usage process [Not Recovered/Not Resolved]
